FAERS Safety Report 12135062 (Version 2)
Quarter: 2016Q1

REPORT INFORMATION
  Report Type: Spontaneous
  Country: FI (occurrence: FI)
  Receive Date: 20160301
  Receipt Date: 20160317
  Transmission Date: 20160526
  Serious: Yes (Other)
  Sender: FDA-Public Use
  Company Number: FI-AMGEN-FINSP2016021189

PATIENT
  Sex: Female

DRUGS (7)
  1. ENBREL [Suspect]
     Active Substance: ETANERCEPT
     Indication: JUVENILE IDIOPATHIC ARTHRITIS
     Dosage: 5 MG, 2X/WEEK
     Route: 058
     Dates: start: 20090116, end: 20090327
  2. OXIKLORIN [Concomitant]
     Active Substance: HYDROXYCHLOROQUINE SULFATE
     Dosage: UNK
  3. PRONAXEN [Concomitant]
     Active Substance: NAPROXEN
     Dosage: UNK
  4. FLUOROMETHOLONE. [Suspect]
     Active Substance: FLUOROMETHOLONE
     Indication: IRITIS
     Dosage: TO THE RIGHT SIDE THREE TIMES DAILY AND TO THE LEFT SIDE ONCE DAILY
     Route: 065
  5. CORTISONE [Suspect]
     Active Substance: CORTISONE\HYDROCORTISONE
     Indication: IRITIS
     Dosage: TO THE RIGHT SIDE THREE TIMES DAILY AND TO THE LEFT SIDE ONCE DAILY
     Route: 065
  6. TREXAN                             /00113801/ [Concomitant]
     Active Substance: METHOTREXATE SODIUM
     Dosage: UNK
  7. FOLVITE                            /00024201/ [Concomitant]
     Dosage: UNK

REACTIONS (2)
  - Iritis [Recovered/Resolved]
  - Intraocular pressure increased [Unknown]
